FAERS Safety Report 7473577-X (Version None)
Quarter: 2011Q2

REPORT INFORMATION
  Report Type: 
  Country: None (occurrence: None)
  Receive Date: 20110511
  Receipt Date: 20110429
  Transmission Date: 20111010
  Serious: Yes (Hospitalization)
  Sender: FDA-Public Use
  Company Number: GB-MERCK-1105USA00490

PATIENT
  Age: 74 Year
  Sex: Male
  Weight: 58 kg

DRUGS (6)
  1. DECADRON [Suspect]
     Indication: MULTIPLE MYELOMA
     Route: 048
     Dates: start: 20110207, end: 20110310
  2. VELCADE [Suspect]
     Indication: MULTIPLE MYELOMA
     Route: 042
     Dates: start: 20110207, end: 20110310
  3. AMOXICILLIN AND CLAVULANATE POTASSIUM [Concomitant]
     Indication: INFECTION
     Route: 048
     Dates: start: 20110303, end: 20110312
  4. CLARITHROMYCIN [Concomitant]
     Indication: INFECTION
     Route: 065
     Dates: start: 20110303, end: 20110312
  5. CYCLOPHOSPHAMIDE [Suspect]
     Indication: MULTIPLE MYELOMA
     Route: 048
     Dates: start: 20110207, end: 20110310
  6. ACETAMINOPHEN [Concomitant]
     Route: 065
     Dates: start: 20110301

REACTIONS (1)
  - PNEUMONIA [None]
